FAERS Safety Report 14602666 (Version 2)
Quarter: 2018Q2

REPORT INFORMATION
  Report Type: Report from Study
  Country: None (occurrence: US)
  Receive Date: 20180306
  Receipt Date: 20180625
  Transmission Date: 20180711
  Serious: Yes (Other)
  Sender: FDA-Public Use
  Company Number: US-ABBVIE-18K-163-2262065-00

PATIENT
  Age: 50 Year
  Sex: Male
  Weight: 119.86 kg

DRUGS (10)
  1. HUMIRA [Suspect]
     Active Substance: ADALIMUMAB
     Indication: HIDRADENITIS
     Route: 058
     Dates: start: 2012
  2. IRON SUPPLEMENT WITH VIT C + HERBS [Concomitant]
     Active Substance: IRON\VITAMINS
     Indication: ANAEMIA
     Dates: start: 2016
  3. IRON [Concomitant]
     Active Substance: IRON
     Indication: ANAEMIA
     Dates: start: 201602
  4. CLINDAMYCIN. [Suspect]
     Active Substance: CLINDAMYCIN
     Indication: INFECTION PROPHYLAXIS
     Route: 065
     Dates: start: 20180208, end: 20180215
  5. PENICILLIN NOS [Concomitant]
     Active Substance: PENICILLIN
     Indication: INFECTION PROPHYLAXIS
     Dates: start: 20180216, end: 20180222
  6. LIDOCAINE. [Concomitant]
     Active Substance: LIDOCAINE
     Indication: PAIN PROPHYLAXIS
     Dates: start: 201608, end: 201708
  7. CHLORHEXIDINE [Concomitant]
     Active Substance: CHLORHEXIDINE
     Indication: INFECTION PROPHYLAXIS
     Dates: start: 20180211
  8. RANITIDINE. [Concomitant]
     Active Substance: RANITIDINE
     Indication: GASTROOESOPHAGEAL REFLUX DISEASE
  9. LISINOPRIL. [Concomitant]
     Active Substance: LISINOPRIL
     Indication: HYPERTENSION
  10. CLOBETASOL PROPIONATE. [Concomitant]
     Active Substance: CLOBETASOL PROPIONATE
     Indication: PSORIASIS
     Route: 061
     Dates: start: 20180220

REACTIONS (7)
  - Post procedural haemorrhage [Unknown]
  - Adhesion [Recovered/Resolved]
  - Lung disorder [Not Recovered/Not Resolved]
  - Device loosening [Recovering/Resolving]
  - Procedural pain [Recovering/Resolving]
  - Abdominal discomfort [Recovered/Resolved]
  - Blood iron decreased [Unknown]

NARRATIVE: CASE EVENT DATE: 201602
